FAERS Safety Report 5739146-4 (Version None)
Quarter: 2008Q2

REPORT INFORMATION
  Report Type: 
  Country: None (occurrence: None)
  Receive Date: 20080515
  Receipt Date: 20080508
  Transmission Date: 20081010
  Serious: Yes (Other)
  Sender: FDA-Public Use
  Company Number: B0360627A

PATIENT
  Sex: Male

DRUGS (5)
  1. PAROXETINE HCL [Suspect]
     Dosage: 20MG UNKNOWN
     Route: 065
     Dates: start: 19961014
  2. DIAZEPAM [Concomitant]
     Dates: start: 20020122
  3. AMITRIPTYLINE HCL [Concomitant]
     Dates: start: 20010702
  4. PROZAC [Concomitant]
     Dates: start: 19941220
  5. DICYCLOMINE [Concomitant]
     Indication: IRRITABLE BOWEL SYNDROME

REACTIONS (20)
  - ANXIETY [None]
  - BALANCE DISORDER [None]
  - CONFUSIONAL STATE [None]
  - COORDINATION ABNORMAL [None]
  - DEPRESSION [None]
  - DISTURBANCE IN ATTENTION [None]
  - DRUG WITHDRAWAL SYNDROME [None]
  - ERECTILE DYSFUNCTION [None]
  - FLAT AFFECT [None]
  - HEADACHE [None]
  - HYPERHIDROSIS [None]
  - INTENTIONAL SELF-INJURY [None]
  - LETHARGY [None]
  - MEMORY IMPAIRMENT [None]
  - NAUSEA [None]
  - SLEEP DISORDER [None]
  - SUICIDAL IDEATION [None]
  - TREMOR [None]
  - WEIGHT DECREASED [None]
  - WITHDRAWAL SYNDROME [None]
